FAERS Safety Report 16873152 (Version 1)
Quarter: 2019Q4

REPORT INFORMATION
  Report Type: Report from Study
  Country: None (occurrence: CO)
  Receive Date: 20191001
  Receipt Date: 20191001
  Transmission Date: 20200122
  Serious: Yes (Hospitalization)
  Sender: FDA-Public Use
  Company Number: CO-ABBVIE-19K-036-2946467-00

PATIENT
  Age: 7 Month
  Sex: Male
  Weight: 8 kg

DRUGS (1)
  1. SYNAGIS [Suspect]
     Active Substance: PALIVIZUMAB
     Indication: BRONCHOPULMONARY DYSPLASIA
     Route: 030
     Dates: start: 20190223, end: 20190726

REACTIONS (7)
  - Anaemia [Recovering/Resolving]
  - Bacteraemia [Recovering/Resolving]
  - Bacterial infection [Recovering/Resolving]
  - Immunosuppression [Recovering/Resolving]
  - Urine analysis abnormal [Unknown]
  - Blood test abnormal [Unknown]
  - Pyrexia [Recovering/Resolving]

NARRATIVE: CASE EVENT DATE: 201909
